FAERS Safety Report 12982719 (Version 1)
Quarter: 2016Q4

REPORT INFORMATION
  Report Type: Spontaneous
  Country: FR (occurrence: FR)
  Receive Date: 20161129
  Receipt Date: 20161129
  Transmission Date: 20170207
  Serious: Yes (Hospitalization)
  Sender: FDA-Public Use
  Company Number: FR-ELI_LILLY_AND_COMPANY-FR201611005666

PATIENT
  Age: 60 Year
  Sex: Female

DRUGS (10)
  1. MEDROL [Concomitant]
     Active Substance: METHYLPREDNISOLONE
  2. LASILIX                            /00032601/ [Suspect]
     Active Substance: FUROSEMIDE
     Indication: OEDEMA
     Dosage: 40 MG, QD
     Route: 048
     Dates: start: 201508, end: 20150831
  3. ALDACTONE [Suspect]
     Active Substance: SPIRONOLACTONE
     Indication: OEDEMA
     Dosage: 50 MG, QD
     Route: 048
     Dates: start: 201508, end: 20150831
  4. FOLIC ACID. [Concomitant]
     Active Substance: FOLIC ACID
  5. AMIODARONE [Concomitant]
     Active Substance: AMIODARONE
  6. ZOPICLONE [Concomitant]
     Active Substance: ZOPICLONE
  7. CARBOPLATINE [Suspect]
     Active Substance: CARBOPLATIN
     Indication: LUNG ADENOCARCINOMA
     Dosage: UNK, UNKNOWN
     Route: 042
     Dates: start: 201504, end: 20150819
  8. OLMETEC [Suspect]
     Active Substance: OLMESARTAN MEDOXOMIL
     Indication: HYPERTENSION
     Dosage: 10 MG, QD
     Route: 048
     Dates: end: 20150831
  9. ALIMTA [Suspect]
     Active Substance: PEMETREXED DISODIUM
     Indication: LUNG ADENOCARCINOMA
     Dosage: UNK, UNKNOWN
     Route: 042
     Dates: start: 201504
  10. XARELTO [Concomitant]
     Active Substance: RIVAROXABAN

REACTIONS (7)
  - Thrombocytopenia [Recovering/Resolving]
  - Fall [Unknown]
  - Acute kidney injury [Recovered/Resolved]
  - Malaise [Recovered/Resolved]
  - Anaemia [Recovering/Resolving]
  - Neuropathy peripheral [Unknown]
  - Off label use [Unknown]

NARRATIVE: CASE EVENT DATE: 201508
